FAERS Safety Report 5887182-X (Version None)
Quarter: 2008Q3

REPORT INFORMATION
  Report Type: 
  Country: None (occurrence: None)
  Receive Date: 20080917
  Receipt Date: 20080902
  Transmission Date: 20090109
  Serious: Yes (Death, Other)
  Sender: FDA-Public Use
  Company Number: IR-GENENTECH-267724

PATIENT
  Age: 27 Year
  Sex: Male

DRUGS (4)
  1. AVASTIN [Suspect]
     Indication: RECTAL CANCER
  2. LEUCOVORIN CALCIUM [Concomitant]
     Indication: RECTAL CANCER
  3. FLUOROURACIL [Concomitant]
     Indication: RECTAL CANCER
  4. IRINOTECAN HCL [Concomitant]
     Indication: RECTAL CANCER

REACTIONS (2)
  - ACUTE ABDOMEN [None]
  - RESPIRATORY DISORDER [None]
